FAERS Safety Report 12323502 (Version 2)
Quarter: 2016Q2

REPORT INFORMATION
  Report Type: Report from Study
  Country: BR (occurrence: BR)
  Receive Date: 20160502
  Receipt Date: 20160518
  Transmission Date: 20160815
  Serious: Yes (Hospitalization, Other)
  Sender: FDA-Public Use
  Company Number: PHHY2015BR165001

PATIENT
  Age: 12 Year
  Sex: Female
  Weight: 50 kg

DRUGS (2)
  1. HYDREA [Concomitant]
     Active Substance: HYDROXYUREA
     Indication: IRON OVERLOAD
     Dosage: 1 DF, QD
     Route: 048
  2. EXJADE [Suspect]
     Active Substance: DEFERASIROX
     Indication: SICKLE CELL ANAEMIA
     Dosage: 3 DF (30 MG/KG), QD
     Route: 048
     Dates: start: 2012

REACTIONS (12)
  - Hypokinesia [Recovered/Resolved]
  - Serum ferritin increased [Not Recovered/Not Resolved]
  - Pain [Recovering/Resolving]
  - Haemoglobin decreased [Not Recovered/Not Resolved]
  - Abasia [Recovered/Resolved]
  - Hemiplegia [Recovered/Resolved]
  - Asthenia [Not Recovered/Not Resolved]
  - Wrong technique in product usage process [Unknown]
  - Fatigue [Not Recovered/Not Resolved]
  - Ischaemic stroke [Recovered/Resolved]
  - Weight increased [Recovering/Resolving]
  - Ocular icterus [Not Recovered/Not Resolved]

NARRATIVE: CASE EVENT DATE: 201506
